FAERS Safety Report 5767573-8 (Version None)
Quarter: 2008Q2

REPORT INFORMATION
  Report Type: 
  Country: None (occurrence: None)
  Receive Date: 20080612
  Receipt Date: 20080610
  Transmission Date: 20081010
  Serious: Yes (Other)
  Sender: FDA-Public Use
  Company Number: GB-WYE-G01667208

PATIENT
  Sex: Female

DRUGS (4)
  1. TAZOCIN [Suspect]
     Route: 042
     Dates: start: 20080604
  2. DALTEPARIN SODIUM [Concomitant]
     Dosage: 12500 UNIT EVERY
     Dates: start: 20080604
  3. WARFARIN SODIUM [Interacting]
     Dates: start: 20080607, end: 20080608
  4. WARFARIN SODIUM [Interacting]
     Dates: start: 20080609

REACTIONS (2)
  - DRUG INTERACTION [None]
  - INTERNATIONAL NORMALISED RATIO INCREASED [None]
